FAERS Safety Report 17989900 (Version 1)
Quarter: 2020Q3

REPORT INFORMATION
  Report Type: Spontaneous
  Country: GB (occurrence: GB)
  Receive Date: 20200707
  Receipt Date: 20200707
  Transmission Date: 20201103
  Serious: Yes (Other)
  Sender: FDA-Public Use
  Company Number: GB-TEVA-2020-GB-1796030

PATIENT
  Age: 31 Year
  Sex: Female
  Weight: 116.97 kg

DRUGS (6)
  1. SEVEN SEAS COD LIVER OIL [Concomitant]
  2. BUSCOPAN [Concomitant]
     Active Substance: BUTYLSCOPOLAMINE BROMIDE
  3. METOCLOPRAMIDE. [Suspect]
     Active Substance: METOCLOPRAMIDE
     Indication: NAUSEA
     Dosage: 10 MG
     Route: 048
     Dates: start: 20200526, end: 20200615
  4. VITAMIN SUPPLEMENT [Concomitant]
     Active Substance: VITAMINS
  5. LEVOTHYROXINE. [Concomitant]
     Active Substance: LEVOTHYROXINE
  6. SERTRALINE [Concomitant]
     Active Substance: SERTRALINE HYDROCHLORIDE

REACTIONS (9)
  - Eye swelling [Recovered/Resolved with Sequelae]
  - Restlessness [Unknown]
  - Nausea [Unknown]
  - Confusional state [Unknown]
  - Feeling of body temperature change [Unknown]
  - Somnolence [Unknown]
  - Dizziness [Unknown]
  - Swelling of eyelid [Unknown]
  - Dry mouth [Unknown]

NARRATIVE: CASE EVENT DATE: 20200614
